FAERS Safety Report 12449421 (Version 5)
Quarter: 2016Q4

REPORT INFORMATION
  Report Type: Spontaneous
  Country: JP (occurrence: JP)
  Receive Date: 20160608
  Receipt Date: 20161004
  Transmission Date: 20170207
  Serious: Yes (Disabling, Other)
  Sender: FDA-Public Use
  Company Number: PHJP2016JP014760

PATIENT
  Age: 85 Year
  Sex: Female

DRUGS (5)
  1. COSENTYX [Suspect]
     Active Substance: SECUKINUMAB
     Indication: PUSTULAR PSORIASIS
     Dosage: 300 MG, QW
     Route: 058
     Dates: start: 20160314, end: 20160413
  2. PROPETO [Concomitant]
     Indication: PSORIASIS
     Dosage: 2 G, QD
     Route: 062
  3. COSENTYX [Suspect]
     Active Substance: SECUKINUMAB
     Dosage: 300 MG, QMO
     Route: 058
     Dates: start: 20160512, end: 20160512
  4. ANTEBATE [Concomitant]
     Active Substance: BETAMETHASONE DIPROPIONATE
     Indication: PSORIASIS
     Dosage: 2 G, QD
     Route: 062
  5. BETANIS [Concomitant]
     Active Substance: MIRABEGRON
     Indication: POLLAKIURIA
     Dosage: 25 MG, QD
     Route: 048
     Dates: end: 20160512

REACTIONS (12)
  - C-reactive protein increased [Unknown]
  - Monocyte percentage decreased [Unknown]
  - Lymphadenopathy [Unknown]
  - Cough [Recovered/Resolved]
  - Cell marker increased [Recovering/Resolving]
  - Blood lactate dehydrogenase increased [Unknown]
  - Lymphocyte count decreased [Unknown]
  - Chest X-ray abnormal [Unknown]
  - Lymphocyte percentage decreased [Unknown]
  - Red blood cell count decreased [Unknown]
  - Interstitial lung disease [Recovering/Resolving]
  - Nephrolithiasis [Unknown]

NARRATIVE: CASE EVENT DATE: 20160314
